FAERS Safety Report 5279065-3 (Version None)
Quarter: 2007Q1

REPORT INFORMATION
  Report Type: 
  Country: None (occurrence: None)
  Receive Date: 20070328
  Receipt Date: 20060811
  Transmission Date: 20070707
  Serious: No
  Sender: FDA-Public Use
  Company Number: US-AMGEN-US166068

PATIENT
  Sex: Female

DRUGS (4)
  1. NEULASTA [Suspect]
     Indication: DRUG USE FOR UNKNOWN INDICATION
     Route: 058
     Dates: start: 20051228, end: 20060103
  2. CYTOXAN [Concomitant]
     Dates: start: 20051227
  3. FLUOROURACIL [Concomitant]
     Dates: start: 20051227
  4. EPIRUBICIN HYDROCHLORIDE [Concomitant]
     Dates: start: 20051227

REACTIONS (1)
  - FEBRILE NEUTROPENIA [None]
